FAERS Safety Report 12427293 (Version 1)
Quarter: 2016Q2

REPORT INFORMATION
  Report Type: Spontaneous
  Country: US (occurrence: US)
  Receive Date: 20160602
  Receipt Date: 20160602
  Transmission Date: 20160815
  Serious: Yes (Hospitalization)
  Sender: FDA-Public Use
  Company Number: PHHY2016US071718

PATIENT
  Age: 47 Year
  Sex: Male

DRUGS (4)
  1. 6-MERCAPTOPURINE MONOHYDRATE [Suspect]
     Active Substance: MERCAPTOPURINE
     Dosage: 25 MG, QD
     Route: 065
  2. METHOTREXATE [Suspect]
     Active Substance: METHOTREXATE
     Indication: CHEMOTHERAPY
     Dosage: 30 MG, QW
     Route: 048
  3. METHOTREXATE [Suspect]
     Active Substance: METHOTREXATE
     Dosage: 7.5 MG, QW
     Route: 065
  4. 6-MERCAPTOPURINE MONOHYDRATE [Suspect]
     Active Substance: MERCAPTOPURINE
     Indication: CHEMOTHERAPY
     Dosage: 100 MG, BID
     Route: 048

REACTIONS (3)
  - Pancytopenia [Recovering/Resolving]
  - Toxicity to various agents [Unknown]
  - Mucosal inflammation [Unknown]
